FAERS Safety Report 8020747-8 (Version None)
Quarter: 2012Q1

REPORT INFORMATION
  Report Type: 
  Country: None (occurrence: None)
  Receive Date: 20120104
  Receipt Date: 20111208
  Transmission Date: 20120608
  Serious: Yes (Other)
  Sender: FDA-Public Use
  Company Number: CH-AMGEN-CHESP2011043757

PATIENT
  Age: 45 Year
  Sex: Female
  Weight: 47 kg

DRUGS (5)
  1. METHOTREXATE SODIUM [Suspect]
     Dosage: 15 MG, WEEKLY
     Route: 058
     Dates: start: 20091215
  2. SULFASALAZINE [Suspect]
     Dosage: 1000 MG, 2X/DAY
     Route: 048
     Dates: start: 20110601
  3. ENBREL [Suspect]
     Indication: PSORIATIC ARTHROPATHY
     Dosage: 50 MG, WEEKLY
     Route: 058
     Dates: start: 20110601
  4. METHOTREXATE [Suspect]
     Dosage: 15 MG, WEEKLY
     Route: 058
     Dates: start: 20091215
  5. IBUPROFEN [Concomitant]
     Dosage: 600 MG, THREE TIMES PER DAY AS NEEDED
     Route: 048

REACTIONS (3)
  - LYMPHADENITIS [None]
  - HISTIOCYTIC NECROTISING LYMPHADENITIS [None]
  - LYMPHADENOPATHY [None]
